FAERS Safety Report 17017555 (Version 3)
Quarter: 2019Q4

REPORT INFORMATION
  Report Type: Spontaneous
  Country: US (occurrence: US)
  Receive Date: 20191111
  Receipt Date: 20191206
  Transmission Date: 20200122
  Serious: Yes (Other)
  Sender: FDA-Public Use
  Company Number: US-PFIZER INC-2019481794

PATIENT
  Age: 71 Year
  Sex: Female
  Weight: 52.15 kg

DRUGS (7)
  1. LYRICA [Suspect]
     Active Substance: PREGABALIN
     Indication: CARDIAC DISORDER
     Dosage: UNK
  2. NIACIN. [Suspect]
     Active Substance: NIACIN
     Dosage: UNK
     Route: 048
  3. PROPOFOL. [Suspect]
     Active Substance: PROPOFOL
     Indication: SURGERY
     Dosage: UNK
     Dates: start: 2014
  4. PROPOFOL. [Suspect]
     Active Substance: PROPOFOL
     Dosage: UNK
     Dates: start: 201902
  5. CYMBALTA [Suspect]
     Active Substance: DULOXETINE HYDROCHLORIDE
     Indication: CARDIAC DISORDER
     Dosage: UNK
  6. XARELTO [Suspect]
     Active Substance: RIVAROXABAN
     Dosage: UNK
  7. FUROSEMIDE. [Suspect]
     Active Substance: FUROSEMIDE
     Dosage: UNK

REACTIONS (12)
  - Rhinitis [Recovering/Resolving]
  - Dyspnoea [Unknown]
  - Feeling abnormal [Unknown]
  - Rash macular [Unknown]
  - Rhinorrhoea [Unknown]
  - Angina pectoris [Unknown]
  - Hyperaesthesia [Unknown]
  - Urticaria [Recovering/Resolving]
  - Pruritus [Unknown]
  - Hypertension [Unknown]
  - Drug hypersensitivity [Recovered/Resolved]
  - Hot flush [Unknown]

NARRATIVE: CASE EVENT DATE: 201402
